FAERS Safety Report 5312165-8 (Version None)
Quarter: 2007Q1

REPORT INFORMATION
  Report Type: 
  Country: None (occurrence: None)
  Receive Date: 20070201
  Receipt Date: 20061227
  Transmission Date: 20070707
  Serious: Yes (Other)
  Sender: FDA-Public Use
  Company Number: US-2006-030418

PATIENT
  Age: 37 Year
  Sex: Female
  Weight: 70 kg

DRUGS (5)
  1. MIRENA [Suspect]
     Indication: CONTRACEPTION
     Dosage: 20 UG/DAY, CONT, INTRA-UTERINE
     Route: 015
     Dates: start: 20050619
  2. LASIX [Concomitant]
  3. ANAPRIL (ENALAPRIL MALEATE) [Concomitant]
  4. POTASSIUM (POTASSIUM) [Concomitant]
  5. TOPROL-XL [Concomitant]

REACTIONS (5)
  - ABDOMINAL PAIN [None]
  - ABDOMINAL PAIN UPPER [None]
  - BACK INJURY [None]
  - GENITAL HAEMORRHAGE [None]
  - IUD MIGRATION [None]
